FAERS Safety Report 14247907 (Version 22)
Quarter: 2021Q2

REPORT INFORMATION
  Report Type: Spontaneous
  Country: BR (occurrence: BR)
  Receive Date: 20171204
  Receipt Date: 20210517
  Transmission Date: 20210716
  Serious: Yes (Hospitalization, Other)
  Sender: FDA-Public Use
  Company Number: BR-GLAXOSMITHKLINE-BR2017GSK182008

PATIENT
  Age: 35 Year
  Sex: Female
  Weight: 62 kg

DRUGS (13)
  1. BENLYSTA [Suspect]
     Active Substance: BELIMUMAB
     Indication: SYSTEMIC LUPUS ERYTHEMATOSUS
     Dosage: 760 MG, UNK, 5 VIALS OF 120 MG
     Route: 042
     Dates: start: 20171025
  2. METHOTREXATE. [Suspect]
     Active Substance: METHOTREXATE
     Indication: PRODUCT USED FOR UNKNOWN INDICATION
     Dosage: 2.5 MG, QD
  3. LEFLUNOMIDE. [Suspect]
     Active Substance: LEFLUNOMIDE
     Indication: PRODUCT USED FOR UNKNOWN INDICATION
     Dosage: 20 MG, QD
  4. DONAREN [Suspect]
     Active Substance: TRAZODONE HYDROCHLORIDE
     Indication: ANTIDEPRESSANT THERAPY
     Dosage: 150 MG, UNK
  5. METHOTREXATE SODIUM. [Suspect]
     Active Substance: METHOTREXATE SODIUM
     Indication: PRODUCT USED FOR UNKNOWN INDICATION
     Dosage: 2 MG, WE
  6. VITAMIN D [Suspect]
     Active Substance: VITAMIN D NOS
     Indication: HYPOVITAMINOSIS
     Dosage: UNK
  7. AZATHIOPRINE. [Concomitant]
     Active Substance: AZATHIOPRINE
     Indication: PRODUCT USED FOR UNKNOWN INDICATION
     Dosage: UNK
  8. DAPSONE. [Concomitant]
     Active Substance: DAPSONE
     Indication: SYSTEMIC LUPUS ERYTHEMATOSUS
     Dosage: 1 DF, QD(100 MG)
  9. AZITHROMYCIN ANHYDROUS. [Suspect]
     Active Substance: AZITHROMYCIN ANHYDROUS
     Indication: PRODUCT USED FOR UNKNOWN INDICATION
     Dosage: 20 MG
  10. CALCIUM [Suspect]
     Active Substance: CALCIUM
     Indication: NUTRITIONAL SUPPLEMENTATION
     Dosage: UNK
  11. AMOXICILLIN. [Suspect]
     Active Substance: AMOXICILLIN
     Indication: PRODUCT USED FOR UNKNOWN INDICATION
     Dosage: UNK
  12. VITAMIN B12 [Suspect]
     Active Substance: CYANOCOBALAMIN
     Indication: HYPOVITAMINOSIS
     Dosage: UNK
  13. FOLIC ACID. [Suspect]
     Active Substance: FOLIC ACID
     Indication: PRODUCT USED FOR UNKNOWN INDICATION
     Dosage: UNK

REACTIONS (36)
  - Weight decreased [Unknown]
  - Paraesthesia [Unknown]
  - Anaemia [Unknown]
  - Liver injury [Unknown]
  - COVID-19 [Recovered/Resolved]
  - Product dose omission issue [Unknown]
  - Sinusitis [Recovered/Resolved]
  - Arthralgia [Unknown]
  - Coronavirus test positive [Unknown]
  - Malaise [Recovered/Resolved]
  - Rash [Not Recovered/Not Resolved]
  - Secretion discharge [Unknown]
  - Bronchitis [Recovered/Resolved]
  - Skin disorder [Recovering/Resolving]
  - Condition aggravated [Recovering/Resolving]
  - Dermatitis allergic [Not Recovered/Not Resolved]
  - Oropharyngeal pain [Recovered/Resolved]
  - Product availability issue [Unknown]
  - Abdominal pain upper [Recovered/Resolved]
  - Cholelithiasis [Unknown]
  - Asthmatic crisis [Unknown]
  - Cataract operation [Unknown]
  - Acute febrile neutrophilic dermatosis [Unknown]
  - Influenza [Recovered/Resolved]
  - Abdominal pain [Unknown]
  - Herpes zoster [Unknown]
  - Oxygen saturation decreased [Unknown]
  - Asthma [Unknown]
  - Drug-induced liver injury [Recovering/Resolving]
  - Underdose [Unknown]
  - Transfusion [Unknown]
  - Emphysema [Unknown]
  - Respiratory disorder [Unknown]
  - Headache [Unknown]
  - Weight increased [Unknown]
  - Urinary tract infection [Unknown]

NARRATIVE: CASE EVENT DATE: 20171203
